FAERS Safety Report 4730017-9 (Version None)
Quarter: 2005Q3

REPORT INFORMATION
  Report Type: 
  Country: None (occurrence: None)
  Receive Date: 20050801
  Receipt Date: 20050706
  Transmission Date: 20060218
  Serious: Yes (Hospitalization)
  Sender: FDA-Public Use
  Company Number: 2005AC01017

PATIENT
  Age: 32279 Day
  Sex: Female

DRUGS (6)
  1. OMEPRAZOLUM [Suspect]
     Indication: DYSPEPSIA
  2. SELOKEEN [Suspect]
     Indication: PALPITATIONS
     Route: 048
     Dates: start: 20050318, end: 20050527
  3. ASCAL CARDIO BRISPER BRUISTTABLET [Concomitant]
  4. CALCI CHEW D3 [Concomitant]
  5. CINNARIZINUM [Concomitant]
  6. FUROSEMIDE [Concomitant]

REACTIONS (5)
  - ABNORMAL DREAMS [None]
  - FALL [None]
  - RESTLESSNESS [None]
  - SLEEP DISORDER [None]
  - SOMNOLENCE [None]
